FAERS Safety Report 12347105 (Version 6)
Quarter: 2017Q3

REPORT INFORMATION
  Report Type: Report from Study
  Country: IT (occurrence: IT)
  Receive Date: 20160509
  Receipt Date: 20170913
  Transmission Date: 20171127
  Serious: Yes (Hospitalization, Disabling)
  Sender: FDA-Public Use
  Company Number: IT-B.I. PHARMACEUTICALS,INC./RIDGEFIELD-2016-BI-28016BI

PATIENT
  Age: 81 Year
  Sex: Female
  Weight: 75 kg

DRUGS (4)
  1. DABIGATRAN [Suspect]
     Active Substance: DABIGATRAN
     Route: 048
  2. ASA [Suspect]
     Active Substance: ASPIRIN
     Indication: PERCUTANEOUS CORONARY INTERVENTION
     Route: 048
     Dates: start: 20150824
  3. CLOPIDOGREL [Suspect]
     Active Substance: CLOPIDOGREL BISULFATE
     Indication: PERCUTANEOUS CORONARY INTERVENTION
     Route: 048
     Dates: start: 20150824
  4. DABIGATRAN [Suspect]
     Active Substance: DABIGATRAN
     Indication: ATRIAL FIBRILLATION
     Route: 048
     Dates: start: 20150824, end: 20150828

REACTIONS (1)
  - Rectal cancer [Recovered/Resolved]

NARRATIVE: CASE EVENT DATE: 20150828
